FAERS Safety Report 23667210 (Version 1)
Quarter: 2024Q1

REPORT INFORMATION
  Report Type: Spontaneous
  Country: NL (occurrence: NL)
  Receive Date: 20240325
  Receipt Date: 20240325
  Transmission Date: 20240410
  Serious: Yes (Life-Threatening)
  Sender: FDA-Public Use
  Company Number: None

PATIENT

DRUGS (2)
  1. PASIREOTIDE [Suspect]
     Active Substance: PASIREOTIDE
     Indication: Pancreaticoduodenectomy
     Dosage: 0.9 MILLIGRAM, Q12H (2DD 0,9 MG=1ML (9 MG/ML))
     Dates: start: 20240226, end: 20240301
  2. PASIREOTIDE [Suspect]
     Active Substance: PASIREOTIDE
     Indication: Off label use

REACTIONS (2)
  - Cardiac arrest [Recovered/Resolved]
  - Off label use [Recovered/Resolved]

NARRATIVE: CASE EVENT DATE: 20240101
